FAERS Safety Report 5927933-9 (Version None)
Quarter: 2008Q4

REPORT INFORMATION
  Report Type: 
  Country: None (occurrence: None)
  Receive Date: 20081022
  Receipt Date: 20081022
  Transmission Date: 20090506
  Serious: Yes (Other)
  Sender: FDA-Public Use
  Company Number: None

PATIENT
  Sex: Male
  Weight: 77.27 kg

DRUGS (1)
  1. DEMEROL [Suspect]
     Dosage: 75MG IV
     Route: 042
     Dates: start: 20080918, end: 20080918

REACTIONS (2)
  - INJECTION SITE ERYTHEMA [None]
  - INJECTION SITE VESICLES [None]
